FAERS Safety Report 19942424 (Version 2)
Quarter: 2021Q4

REPORT INFORMATION
  Report Type: Other
  Country: IT (occurrence: None)
  Receive Date: 20211011
  Receipt Date: 20211125
  Transmission Date: 20220303
  Serious: Yes (Death, Hospitalization, Disabling)
  Sender: FDA-Public Use
  Company Number: IT-ROCHE-2928093

PATIENT
  Age: 66 Year
  Sex: Female
  Weight: 60 kg

DRUGS (1)
  1. ADO-TRASTUZUMAB EMTANSINE [Suspect]
     Active Substance: ADO-TRASTUZUMAB EMTANSINE
     Indication: Product used for unknown indication
     Route: 042
     Dates: start: 20210812, end: 20210902

REACTIONS (6)
  - Dyspnoea [Fatal]
  - Pyrexia [Recovered/Resolved]
  - Thrombocytopenia [Recovered/Resolved]
  - Pneumonia [Fatal]
  - Leukocytosis [Not Recovered/Not Resolved]
  - Respiratory failure [Fatal]

NARRATIVE: CASE EVENT DATE: 20210916
